FAERS Safety Report 6713353-6 (Version None)
Quarter: 2010Q2

REPORT INFORMATION
  Report Type: 
  Country: None (occurrence: None)
  Receive Date: 20100506
  Receipt Date: 20100423
  Transmission Date: 20101027
  Serious: Yes (Death)
  Sender: FDA-Public Use
  Company Number: US-GENZYME-FABR-1001313

PATIENT
  Sex: Male
  Weight: 65.9 kg

DRUGS (2)
  1. FABRAZYME [Suspect]
     Indication: FABRY'S DISEASE
     Dosage: 35 MG, Q4W
     Dates: start: 20100219, end: 20100316
  2. FABRAZYME [Suspect]
     Dosage: 70 MG, UNK
     Route: 042
     Dates: start: 20040101, end: 20100106

REACTIONS (3)
  - CARDIAC DISORDER [None]
  - PULMONARY EMBOLISM [None]
  - RENAL DISORDER [None]
